FAERS Safety Report 8172604-4 (Version None)
Quarter: 2012Q1

REPORT INFORMATION
  Report Type: 
  Country: None (occurrence: None)
  Receive Date: 20120229
  Receipt Date: 20120223
  Transmission Date: 20120608
  Serious: Yes (Other)
  Sender: FDA-Public Use
  Company Number: US-PFIZER INC-2011197792

PATIENT
  Sex: Female

DRUGS (5)
  1. ACETAMINOPHEN AND HYDROCODONE BITARTRATE [Concomitant]
     Indication: PAIN
     Dosage: UNK
     Dates: start: 20050101, end: 20100101
  2. CHANTIX [Suspect]
     Indication: SMOKING CESSATION THERAPY
     Dosage: SAMPLE PACK, STARTER PACK AND CONTINUING PACK
     Route: 048
     Dates: start: 20090101, end: 20090501
  3. AZITHROMYCIN [Concomitant]
     Indication: ANTIBIOTIC THERAPY
     Dosage: UNK
     Dates: start: 20060101, end: 20100101
  4. FLUCONAZOLE [Concomitant]
     Indication: INFECTION
     Dosage: UNK
     Dates: start: 20080101, end: 20100101
  5. OXYCODONE [Concomitant]
     Indication: PAIN
     Dosage: UNK
     Dates: start: 20070101

REACTIONS (4)
  - AGGRESSION [None]
  - ANXIETY [None]
  - SUICIDAL BEHAVIOUR [None]
  - DEPRESSION [None]
